FAERS Safety Report 8321018-2 (Version None)
Quarter: 2012Q2

REPORT INFORMATION
  Report Type: 
  Country: None (occurrence: None)
  Receive Date: 20120430
  Receipt Date: 20120420
  Transmission Date: 20120825
  Serious: Yes (Life-Threatening)
  Sender: FDA-Public Use
  Company Number: ZA-SANOFI-AVENTIS-2012SA023390

PATIENT
  Age: 73 Year
  Sex: Male

DRUGS (10)
  1. GLUCOPHAGE [Concomitant]
     Indication: DIABETES MELLITUS
     Route: 048
  2. SOLOSTAR [Suspect]
     Dates: start: 20100401
  3. ASPIRIN [Concomitant]
     Route: 048
  4. SOLOSTAR [Suspect]
     Indication: DEVICE THERAPY
     Dates: start: 20100401
  5. APIDRA SOLOSTAR [Suspect]
     Indication: DIABETES MELLITUS
     Dosage: DOSE: +/- 80 IU
     Route: 058
     Dates: start: 20100401
  6. PROPRANOLOL HYDROCHLORIDE [Concomitant]
     Indication: HYPERTENSION
     Route: 048
  7. ASPIRIN [Concomitant]
     Indication: HYPERTENSION
     Route: 048
  8. LANTUS [Suspect]
     Indication: DIABETES MELLITUS
     Dosage: DOSE: +/- 80 IU
     Route: 058
     Dates: start: 20100401
  9. NEXIUM [Concomitant]
     Indication: PEPTIC ULCER
     Route: 048
  10. SIMVASTATIN [Concomitant]
     Route: 048

REACTIONS (2)
  - DEEP VEIN THROMBOSIS [None]
  - DRUG ADMINISTRATION ERROR [None]
